FAERS Safety Report 10813669 (Version 1)
Quarter: 2015Q1

REPORT INFORMATION
  Report Type: Other
  Country: GB (occurrence: GB)
  Receive Date: 20150218
  Receipt Date: 20150218
  Transmission Date: 20150721
  Serious: Yes (Hospitalization)
  Sender: FDA-Public Use
  Company Number: GB-MYLANLABS-2015M1003504

PATIENT

DRUGS (5)
  1. CAPECITABINE. [Suspect]
     Active Substance: CAPECITABINE
     Dosage: UNK
     Route: 048
  2. OMEPRAZOLE. [Concomitant]
     Active Substance: OMEPRAZOLE
     Dosage: 20 MG, BID
     Route: 048
  3. EPIRUBICIN [Suspect]
     Active Substance: EPIRUBICIN
     Dosage: 100 MG, UNK
     Route: 041
  4. OXALIPLATIN. [Suspect]
     Active Substance: OXALIPLATIN
     Dosage: 260 MG, UNK
     Route: 041
  5. SIMVASTATIN. [Concomitant]
     Active Substance: SIMVASTATIN
     Dosage: 20 MG, QD (AT NIGHT)
     Route: 048

REACTIONS (4)
  - Malaise [Recovering/Resolving]
  - Body temperature increased [Recovering/Resolving]
  - Neutropenic sepsis [Recovering/Resolving]
  - Pyrexia [Recovering/Resolving]
